FAERS Safety Report 22633638 (Version 1)
Quarter: 2023Q2

REPORT INFORMATION
  Report Type: Spontaneous
  Country: FR (occurrence: FR)
  Receive Date: 20230623
  Receipt Date: 20230623
  Transmission Date: 20230721
  Serious: Yes (Other)
  Sender: FDA-Public Use
  Company Number: FR-AFSSAPS-CN2023000443

PATIENT
  Age: 45 Year
  Sex: Female

DRUGS (1)
  1. CELECOXIB [Suspect]
     Active Substance: CELECOXIB
     Indication: Migraine
     Dosage: 200 MILLIGRAM, ONCE A DAY (CURE COURTE DE CELECOXIN DE 3 JOURS: 200 MG LE MATIN)
     Route: 048
     Dates: start: 20230424, end: 20230426

REACTIONS (1)
  - Conjunctival haemorrhage [Recovering/Resolving]

NARRATIVE: CASE EVENT DATE: 20230427
